FAERS Safety Report 17903673 (Version 1)
Quarter: 2020Q2

REPORT INFORMATION
  Report Type: Report from Study
  Country: US (occurrence: US)
  Receive Date: 20200616
  Receipt Date: 20200616
  Transmission Date: 20200714
  Serious: Yes (Hospitalization, Other)
  Sender: FDA-Public Use
  Company Number: US-BAUSCH-BL-2020-017008

PATIENT
  Age: 65 Year
  Sex: Male

DRUGS (7)
  1. LASIX [Concomitant]
     Active Substance: FUROSEMIDE
     Indication: BREAST TENDERNESS
  2. XIFAXAN [Suspect]
     Active Substance: RIFAXIMIN
     Indication: HEPATIC ENCEPHALOPATHY
     Route: 048
     Dates: end: 2020
  3. LACTULOSE. [Concomitant]
     Active Substance: LACTULOSE
     Dosage: 20 MG/30 ML
     Route: 048
  4. XIFAXAN [Suspect]
     Active Substance: RIFAXIMIN
     Dosage: RESTARTED WITH SAMPLES
     Route: 048
     Dates: start: 2020
  5. FUROSEMIDE. [Concomitant]
     Active Substance: FUROSEMIDE
     Indication: PRODUCT USED FOR UNKNOWN INDICATION
     Dosage: FOR 90 DAYS
     Route: 048
  6. LACTULOSE. [Concomitant]
     Active Substance: LACTULOSE
     Indication: PRODUCT USED FOR UNKNOWN INDICATION
     Dosage: 10 MG/15 ML?EVERY 6-8 HRS
     Route: 048
  7. OMEPRAZOLE. [Concomitant]
     Active Substance: OMEPRAZOLE
     Indication: PRODUCT USED FOR UNKNOWN INDICATION
     Dosage: DELAYED RELEASE
     Route: 048

REACTIONS (10)
  - Rectal haemorrhage [Unknown]
  - Encephalopathy [Unknown]
  - Splenomegaly [Unknown]
  - Umbilical hernia [Unknown]
  - Therapy interrupted [Unknown]
  - Influenza [Unknown]
  - Ascites [Unknown]
  - Chronic hepatitis C [Unknown]
  - Varices oesophageal [Unknown]
  - Hepatic cirrhosis [Unknown]

NARRATIVE: CASE EVENT DATE: 2018
